FAERS Safety Report 17471470 (Version 2)
Quarter: 2020Q2

REPORT INFORMATION
  Report Type: Spontaneous
  Country: GB (occurrence: GB)
  Receive Date: 20200228
  Receipt Date: 20200505
  Transmission Date: 20200713
  Serious: Yes (Life-Threatening)
  Sender: FDA-Public Use
  Company Number: GB-ACCORD-173932

PATIENT
  Age: 76 Year
  Sex: Female

DRUGS (10)
  1. ACETYLSALICYLIC ACID [Concomitant]
     Active Substance: ASPIRIN
     Dates: start: 20190521
  2. LANSOPRAZOLE. [Concomitant]
     Active Substance: LANSOPRAZOLE
     Dates: start: 20191128
  3. NASEPTIN [Concomitant]
     Active Substance: CHLORHEXIDINE HYDROCHLORIDE\NEOMYCIN SULFATE
     Route: 045
     Dates: start: 20200212
  4. ISOSORBIDE. [Concomitant]
     Active Substance: ISOSORBIDE
     Dates: start: 20190521
  5. CITALOPRAM [Concomitant]
     Active Substance: CITALOPRAM HYDROBROMIDE
     Dates: start: 20180709
  6. LEVOTHYROXINE. [Concomitant]
     Active Substance: LEVOTHYROXINE
     Dosage: EVERY OTHER MORNING
     Dates: start: 20180709
  7. CLOPIDOGREL [Suspect]
     Active Substance: CLOPIDOGREL BISULFATE
     Indication: PRODUCT USED FOR UNKNOWN INDICATION
     Dosage: TAKE FOR 1 YEAR
     Dates: start: 20191128
  8. ATORVASTATIN [Concomitant]
     Active Substance: ATORVASTATIN
     Dosage: IN THE EVENING
     Dates: start: 20190521
  9. TICAGRELOR. [Concomitant]
     Active Substance: TICAGRELOR
     Dates: start: 20200117
  10. BISOPROLOL [Concomitant]
     Active Substance: BISOPROLOL
     Dates: start: 20190530

REACTIONS (1)
  - Neutropenic sepsis [Recovering/Resolving]
